FAERS Safety Report 8435280-9 (Version None)
Quarter: 2012Q2

REPORT INFORMATION
  Report Type: 
  Country: None (occurrence: None)
  Receive Date: 20120614
  Receipt Date: 20120604
  Transmission Date: 20120825
  Serious: Yes (Hospitalization, Other)
  Sender: FDA-Public Use
  Company Number: JP-PFIZER INC-2012141364

PATIENT
  Age: 81 Year

DRUGS (1)
  1. AMIODARONE HYDROCHLORIDE [Suspect]
     Indication: VENTRICULAR TACHYCARDIA
     Dosage: 200 MG, DAILY
     Route: 048
     Dates: start: 20080101, end: 20120501

REACTIONS (4)
  - NAUSEA [None]
  - LIVER FUNCTION TEST ABNORMAL [None]
  - LIVER SCAN ABNORMAL [None]
  - DECREASED APPETITE [None]
